FAERS Safety Report 13911169 (Version 2)
Quarter: 2017Q3

REPORT INFORMATION
  Report Type: Report from Study
  Country: JP (occurrence: JP)
  Receive Date: 20170828
  Receipt Date: 20170906
  Transmission Date: 20171127
  Serious: Yes (Hospitalization)
  Sender: FDA-Public Use
  Company Number: JP-EMD SERONO-E2B_80078334

PATIENT
  Age: 77 Year
  Sex: Female
  Weight: 49 kg

DRUGS (8)
  1. FERROUS SULFATE. [Concomitant]
     Active Substance: FERROUS SULFATE
     Indication: ANAEMIA
     Dosage: 105 MG, 2X/DAY
     Route: 048
     Dates: start: 20170322, end: 20170807
  2. ACETAMINOPHEN. [Concomitant]
     Active Substance: ACETAMINOPHEN
     Indication: PAIN
     Dosage: 500 MG, 2X/DAY
     Route: 048
     Dates: start: 2017
  3. SOLYUGEN [Concomitant]
     Indication: FLUID REPLACEMENT
     Dosage: 500 ML, 1X/DAY
     Dates: start: 20170720
  4. METOCLOPRAMIDE HYDROCHLORIDE. [Concomitant]
     Active Substance: METOCLOPRAMIDE HYDROCHLORIDE
     Indication: VOMITING
     Dosage: 10 MG, 1X/DAY
     Dates: start: 20170722, end: 20170801
  5. BFLUID [Concomitant]
     Active Substance: AMINO ACIDS\DEXTROSE\ELECTROLYTES NOS\VITAMINS
     Indication: FLUID REPLACEMENT
     Dosage: 500 ML, 1X/DAY
     Dates: start: 20170721
  6. METOCLOPRAMIDE. [Concomitant]
     Active Substance: METOCLOPRAMIDE
     Indication: VOMITING
     Dosage: 5 MG, 3X/DAY
     Route: 048
     Dates: start: 20170712
  7. OMEPRAZOLE SODIUM [Concomitant]
     Active Substance: OMEPRAZOLE SODIUM
     Indication: GASTRIC ULCER
     Dosage: 20 MG, 2X/DAY
     Dates: start: 20170728, end: 20170801
  8. AVELUMAB [Suspect]
     Active Substance: AVELUMAB
     Indication: MALIGNANT NEOPLASM OF RENAL PELVIS
     Dosage: 448 MG, UNK
     Dates: start: 20170705, end: 20170705

REACTIONS (1)
  - Platelet count decreased [Not Recovered/Not Resolved]

NARRATIVE: CASE EVENT DATE: 20170727
